FAERS Safety Report 23503714 (Version 1)
Quarter: 2024Q1

REPORT INFORMATION
  Report Type: Spontaneous
  Country: US (occurrence: None)
  Receive Date: 20240208
  Receipt Date: 20240208
  Transmission Date: 20240409
  Serious: Yes (Hospitalization)
  Sender: FDA-Public Use
  Company Number: None

PATIENT
  Sex: Female

DRUGS (1)
  1. TALTZ [Suspect]
     Active Substance: IXEKIZUMAB

REACTIONS (5)
  - Nasopharyngitis [None]
  - Influenza [None]
  - Syncope [None]
  - Hypertension [None]
  - Pain [None]

NARRATIVE: CASE EVENT DATE: 20240206
